FAERS Safety Report 6571516-7 (Version None)
Quarter: 2010Q1

REPORT INFORMATION
  Report Type: 
  Country: None (occurrence: None)
  Receive Date: 20100205
  Receipt Date: 20100128
  Transmission Date: 20100710
  Serious: Yes (Other)
  Sender: FDA-Public Use
  Company Number: ES-ASTRAZENECA-2010SE04082

PATIENT
  Age: 88 Year
  Sex: Male

DRUGS (3)
  1. DIPRIVAN [Suspect]
     Indication: VITRECTOMY
     Dosage: 5 AMPOULES - 20 ML OF UNKNOWN UNITS
     Route: 042
     Dates: start: 20091016, end: 20091016
  2. LIDOCAINE HIDROCHLORIDE [Suspect]
     Indication: VITRECTOMY
     Route: 031
     Dates: start: 20091016, end: 20091016
  3. EPINEPHRINE [Suspect]
     Indication: VITRECTOMY
     Route: 065
     Dates: start: 20091016, end: 20091016

REACTIONS (2)
  - ATRIOVENTRICULAR BLOCK [None]
  - ENCEPHALOPATHY [None]
